FAERS Safety Report 4610012-0 (Version None)
Quarter: 2005Q1

REPORT INFORMATION
  Report Type: 
  Country: None (occurrence: None)
  Receive Date: 20050315
  Receipt Date: 20050317
  Transmission Date: 20050727
  Serious: Yes (Other)
  Sender: FDA-Public Use
  Company Number: HQWYE426319AUG04

PATIENT
  Age: 76 Year
  Sex: Male

DRUGS (13)
  1. PANTOPRAZOLE SODIUM [Suspect]
     Indication: GASTROOESOPHAGEAL REFLUX DISEASE
     Dosage: 40 MG 1X PER 1 DAY; ORAL
     Route: 048
     Dates: start: 20010508, end: 20040616
  2. LIPITOR [Suspect]
     Indication: HYPERCHOLESTEROLAEMIA
     Dosage: 10 MG 1X PER 1 DAY;
     Dates: start: 20030113
  3. CELEBREX [Concomitant]
  4. CELESTONE [Concomitant]
  5. KALTOSTAT (CALCIUM ALGINATE) [Concomitant]
  6. KARVEA (IRBESARTAN) [Concomitant]
  7. LASIX [Concomitant]
  8. METAMUCIL-2 [Concomitant]
  9. MINIPRESS [Concomitant]
  10. PARIET (RABEPRAZOLE) [Concomitant]
  11. QUININE BISULFATE [Concomitant]
  12. CIALIS [Concomitant]
  13. BACTIGRAS (CHLORHEXIDINE DIACETATE/PARAFIN, LIQUID) [Concomitant]

REACTIONS (4)
  - DISEASE RECURRENCE [None]
  - DRUG INTERACTION [None]
  - ELECTROCARDIOGRAM QRS COMPLEX PROLONGED [None]
  - TRANSIENT ISCHAEMIC ATTACK [None]
